FAERS Safety Report 7145154-1 (Version None)
Quarter: 2010Q4

REPORT INFORMATION
  Report Type: 
  Country: None (occurrence: None)
  Receive Date: 20101208
  Receipt Date: 20101208
  Transmission Date: 20110411
  Serious: No
  Sender: FDA-Public Use
  Company Number: US-JNJFOC-20100700329

PATIENT
  Age: 2 Year
  Sex: Male

DRUGS (4)
  1. CONCENTRATED MOTRIN INFANTS DROPS [Suspect]
     Route: 048
  2. CONCENTRATED MOTRIN INFANTS DROPS [Suspect]
     Indication: PYREXIA
     Route: 048
  3. CONCENTRATED TYLENOL INFANT DROPS [Suspect]
     Route: 048
  4. CONCENTRATED TYLENOL INFANT DROPS [Suspect]
     Indication: PYREXIA
     Route: 048

REACTIONS (4)
  - DYSPHEMIA [None]
  - LETHARGY [None]
  - PRODUCT QUALITY ISSUE [None]
  - SOMNOLENCE [None]
